FAERS Safety Report 4740641-5 (Version None)
Quarter: 2005Q3

REPORT INFORMATION
  Report Type: 
  Country: None (occurrence: None)
  Receive Date: 20050801
  Receipt Date: 20050516
  Transmission Date: 20060218
  Serious: No
  Sender: FDA-Public Use
  Company Number: 800375

PATIENT
  Age: 33 Year
  Sex: Female
  Weight: 65.3 kg

DRUGS (14)
  1. EXTRANEAL [Suspect]
     Indication: PERITONEAL DIALYSIS
     Dosage: 2 L; EVERY DAY; IP
     Route: 033
     Dates: start: 20050501, end: 20050510
  2. DIATEX [Concomitant]
  3. FOSRENOL [Concomitant]
  4. POTASSIUM CHLORIDE [Concomitant]
  5. NORVASC [Concomitant]
  6. PHOSLO [Concomitant]
  7. PROFERRIN [Concomitant]
  8. ROCALTROL [Concomitant]
  9. SENSIPAR [Concomitant]
  10. TOPRAL [Concomitant]
  11. TUMS [Concomitant]
  12. INSULIN [Concomitant]
  13. ARANESP [Concomitant]
  14. HUMALOG [Concomitant]

REACTIONS (2)
  - PRURITUS [None]
  - RASH ERYTHEMATOUS [None]
